FAERS Safety Report 9164668 (Version 1)
Quarter: 2013Q1

REPORT INFORMATION
  Report Type: Spontaneous
  Country: SA (occurrence: None)
  Receive Date: 20130314
  Receipt Date: 20130314
  Transmission Date: 20140127
  Serious: Yes (Death, Life-Threatening, Hospitalization)
  Sender: FDA-Public Use
  Company Number: None

PATIENT
  Age: 3 Year
  Sex: Female
  Weight: 13.6 kg

DRUGS (1)
  1. METHOTREXATE [Suspect]
     Route: 037
     Dates: start: 20120916

REACTIONS (5)
  - Abnormal behaviour [None]
  - Irritability [None]
  - Hemiparesis [None]
  - Convulsion [None]
  - Coma [None]
